FAERS Safety Report 9355824 (Version 4)
Quarter: 2013Q3

REPORT INFORMATION
  Report Type: Spontaneous
  Country: DE (occurrence: DE)
  Receive Date: 20130619
  Receipt Date: 20130724
  Transmission Date: 20140515
  Serious: Yes (Death)
  Sender: FDA-Public Use
  Company Number: DE-GILEAD-2013-0077371

PATIENT
  Sex: Female

DRUGS (15)
  1. AMBRISENTAN [Suspect]
     Indication: PULMONARY ARTERIAL HYPERTENSION
     Dosage: UNK UNK, QD
     Route: 048
     Dates: start: 20110113, end: 20120613
  2. APROVEL [Concomitant]
     Indication: PULMONARY ARTERIAL HYPERTENSION
     Route: 065
  3. FERRO SANOL DUODENAL [Concomitant]
     Route: 065
  4. IDEOS [Concomitant]
     Route: 065
  5. INSUMAN                            /00646001/ [Concomitant]
     Route: 065
  6. LANTUS [Concomitant]
     Route: 065
  7. LIMPTAR [Concomitant]
     Route: 065
  8. MAGNESIUM [Concomitant]
     Route: 065
  9. MARCUMAR [Concomitant]
     Route: 065
  10. NEBIVOLOL [Concomitant]
     Route: 065
  11. PANTOPRAZOL [Concomitant]
     Route: 065
  12. SPIRIVA [Concomitant]
     Route: 065
  13. TORASEMID [Concomitant]
     Route: 065
  14. VIANI [Concomitant]
     Route: 065
  15. XIPAMIDE [Concomitant]
     Route: 065

REACTIONS (1)
  - Disease progression [Fatal]
